FAERS Safety Report 9386179 (Version 2)
Quarter: 2013Q3

REPORT INFORMATION
  Report Type: Spontaneous
  Country: US (occurrence: US)
  Receive Date: 20130707
  Receipt Date: 20130718
  Transmission Date: 20140515
  Serious: Yes (Hospitalization, Other)
  Sender: FDA-Public Use
  Company Number: US-UCBSA-090753

PATIENT
  Age: 61 Year
  Sex: Male
  Weight: 92.99 kg

DRUGS (2)
  1. CIMZIA [Suspect]
     Indication: COLITIS ULCERATIVE
     Dates: start: 201107
  2. URSODIOL [Concomitant]
     Indication: CHOLANGITIS SCLEROSING
     Dates: start: 200507

REACTIONS (5)
  - Pancreatitis [Recovering/Resolving]
  - Infected cyst [Recovered/Resolved]
  - Large intestine polyp [Unknown]
  - Gallbladder neoplasm [Recovered/Resolved]
  - Prostatomegaly [Not Recovered/Not Resolved]
